FAERS Safety Report 19081308 (Version 3)
Quarter: 2021Q2

REPORT INFORMATION
  Report Type: Report from Study
  Country: US (occurrence: US)
  Receive Date: 20210331
  Receipt Date: 20210512
  Transmission Date: 20210717
  Serious: Yes (Hospitalization)
  Sender: FDA-Public Use
  Company Number: US-HORIZON-NVC-ACT-0357-2020

PATIENT

DRUGS (3)
  1. ACTIMMUNE [Suspect]
     Active Substance: INTERFERON GAMMA-1B
     Indication: CHRONIC GRANULOMATOUS DISEASE
  2. ACTIMMUNE [Suspect]
     Active Substance: INTERFERON GAMMA-1B
     Indication: BREAST CANCER
     Dosage: 50MCG 3 TIMES A WEEK 3 SEPARATED DOSES
     Route: 058
     Dates: start: 20200505, end: 202101
  3. ACTIMMUNE [Suspect]
     Active Substance: INTERFERON GAMMA-1B
     Indication: IMMUNODEFICIENCY
     Dosage: 12 VIALS FOR A 28 DAY SUPPLY
     Route: 065
     Dates: end: 202101

REACTIONS (6)
  - Pyrexia [Unknown]
  - Hospitalisation [Recovered/Resolved]
  - Chills [Unknown]
  - Pain [Unknown]
  - Gastritis [Unknown]
  - Off label use [Unknown]
